FAERS Safety Report 6465545-1 (Version None)
Quarter: 2009Q4

REPORT INFORMATION
  Report Type: 
  Country: None (occurrence: None)
  Receive Date: 20091201
  Receipt Date: 20081105
  Transmission Date: 20100525
  Serious: No
  Sender: FDA-Public Use
  Company Number: US-AMGEN-KDL315942

PATIENT
  Sex: Female
  Weight: 86.3 kg

DRUGS (11)
  1. ENBREL [Suspect]
     Indication: PSORIASIS
     Route: 058
     Dates: start: 20071105
  2. PROTOPIC [Concomitant]
  3. BETAMETHASONE [Concomitant]
     Route: 061
  4. ADVAIR DISKUS 100/50 [Concomitant]
  5. ALTACE [Concomitant]
  6. GLUCOPHAGE [Concomitant]
  7. LEXAPRO [Concomitant]
  8. PREVACID [Concomitant]
  9. SINGULAIR [Concomitant]
  10. ZYRTEC [Concomitant]
  11. CLOBETASOL PROPIONATE [Concomitant]

REACTIONS (4)
  - DRUG EFFECT DECREASED [None]
  - PSORIASIS [None]
  - STASIS DERMATITIS [None]
  - VULVOVAGINAL MYCOTIC INFECTION [None]
